FAERS Safety Report 6245380-X (Version None)
Quarter: 2009Q2

REPORT INFORMATION
  Report Type: 
  Country: None (occurrence: None)
  Receive Date: 20090625
  Receipt Date: 20090623
  Transmission Date: 20091009
  Serious: Yes (Hospitalization)
  Sender: FDA-Public Use
  Company Number: US-BRISTOL-MYERS SQUIBB COMPANY-14677421

PATIENT
  Age: 48 Year
  Sex: Male
  Weight: 54 kg

DRUGS (4)
  1. CARBOPLATIN [Suspect]
     Indication: NON-SMALL CELL LUNG CANCER
     Dosage: START DATE 10MAR09; COURSE-14; CARBO (AUC=4.5)DAY92;REDUCED TO -1 LEVEL PER MD DISCRETION
     Dates: start: 20090616, end: 20090616
  2. CETUXIMAB [Suspect]
     Indication: NON-SMALL CELL LUNG CANCER
     Dosage: 250MG/M2 WEEKLY; START DOATE 10MAR09; COURSE-14
     Dates: start: 20090616, end: 20090616
  3. TAXOL [Suspect]
     Indication: NON-SMALL CELL LUNG CANCER
     Dosage: TAXOL (150 MG/M2) DAY92; START DATE 10MAR09; COURSE-14;REDUCED TO -1 LEVEL PER MD DISCRETION
     Dates: start: 20090616, end: 20090616
  4. RADIATION THERAPY [Suspect]
     Indication: NON-SMALL CELL LUNG CANCER
     Dosage: 1DF-6000CGY; EXTERNAL BEAM, 3D;LAST TREATMENT-28APR09;FRACTION-30;ELAPSED DAYS-43
     Dates: start: 20090310

REACTIONS (3)
  - PNEUMONIA [None]
  - PYREXIA [None]
  - SPEECH DISORDER [None]
